FAERS Safety Report 16656361 (Version 1)
Quarter: 2019Q3

REPORT INFORMATION
  Report Type: Spontaneous
  Country: US (occurrence: US)
  Receive Date: 20190617
  Receipt Date: 20190617
  Transmission Date: 20191004
  Serious: Yes (Death)
  Sender: FDA-Public Use
  Company Number: None

PATIENT
  Age: 67 Year
  Sex: Female
  Weight: 103 kg

DRUGS (15)
  1. LEVETIRACETAM. [Concomitant]
     Active Substance: LEVETIRACETAM
  2. APIXABAN;  BLINDED [Suspect]
     Active Substance: APIXABAN
  3. GLUCOSAMINE [Concomitant]
     Active Substance: GLUCOSAMINE
  4. ONDANSETRON [Concomitant]
     Active Substance: ONDANSETRON
  5. FENTANYL. [Concomitant]
     Active Substance: FENTANYL
  6. HYDROCODONE-ACETAMINOPEHN [Concomitant]
  7. DEXAMETHASONE. [Concomitant]
     Active Substance: DEXAMETHASONE
  8. GABAPENTIN. [Suspect]
     Active Substance: GABAPENTIN
  9. LISINOPRIL. [Concomitant]
     Active Substance: LISINOPRIL
  10. NYSTATIN. [Concomitant]
     Active Substance: NYSTATIN
  11. LOMUSTINE. [Concomitant]
     Active Substance: LOMUSTINE
  12. IMODIUM [Concomitant]
     Active Substance: LOPERAMIDE HYDROCHLORIDE
  13. MULTIVITAMIN [Concomitant]
     Active Substance: VITAMINS
  14. LACTULOSE. [Concomitant]
     Active Substance: LACTULOSE
  15. REGLAN [Concomitant]
     Active Substance: METOCLOPRAMIDE HYDROCHLORIDE

REACTIONS (1)
  - Death [None]
